FAERS Safety Report 7818717-5 (Version None)
Quarter: 2011Q4

REPORT INFORMATION
  Report Type: 
  Country: None (occurrence: None)
  Receive Date: 20111018
  Receipt Date: 20111010
  Transmission Date: 20120403
  Serious: No
  Sender: FDA-Public Use
  Company Number: US-BIOGENIDEC-2011BI026685

PATIENT
  Sex: Male

DRUGS (1)
  1. TYSABRI [Suspect]
     Indication: MULTIPLE SCLEROSIS
     Route: 042
     Dates: start: 20110505, end: 20110826

REACTIONS (10)
  - MALAISE [None]
  - MENTAL IMPAIRMENT [None]
  - BALANCE DISORDER [None]
  - FALL [None]
  - DECUBITUS ULCER [None]
  - SPEECH DISORDER [None]
  - RENAL CYST [None]
  - GENERAL SYMPTOM [None]
  - GAIT DISTURBANCE [None]
  - DRUG INEFFECTIVE [None]
